FAERS Safety Report 7420323-1 (Version None)
Quarter: 2011Q2

REPORT INFORMATION
  Report Type: 
  Country: None (occurrence: None)
  Receive Date: 20110418
  Receipt Date: 20110411
  Transmission Date: 20111010
  Serious: Yes (Death, Hospitalization, Other)
  Sender: FDA-Public Use
  Company Number: PHHY2011US30242

PATIENT
  Age: 78 Year
  Sex: Female

DRUGS (10)
  1. ZOLEDRONIC ACID [Suspect]
     Indication: OSTEOPOROSIS
     Dosage: 05 MG/100 ML
  2. ERGOCALCIFEROL [Concomitant]
     Dosage: 1.25 MG DAILY
  3. METFORMIN HCL [Suspect]
     Dosage: 850 MG, BID
  4. NATEGLINIDE [Concomitant]
     Dosage: 60 MG, UNK
  5. FUROSEMIDE [Concomitant]
     Dosage: 20 MG ONCE A WEEK
  6. METOPROLOL [Concomitant]
     Dosage: 100 MG, BID
  7. ROSUVASTATIN [Concomitant]
     Dosage: 05 MG DAILY
  8. AMLODIPINE [Concomitant]
     Dosage: 10 MG DAILY
  9. GLIMEPIRIDE [Concomitant]
     Dosage: 01 MG DAILY
  10. INDAPAMIDE [Concomitant]
     Dosage: 2.5 MG THREE TIMES A WEEK

REACTIONS (25)
  - METABOLIC ACIDOSIS [None]
  - BLOOD CALCIUM DECREASED [None]
  - PO2 DECREASED [None]
  - BLOOD CREATININE INCREASED [None]
  - UNRESPONSIVE TO STIMULI [None]
  - HEART RATE DECREASED [None]
  - HYPOVENTILATION [None]
  - DEPRESSED LEVEL OF CONSCIOUSNESS [None]
  - HYPOTHERMIA [None]
  - NEPHROPATHY [None]
  - TOXICITY TO VARIOUS AGENTS [None]
  - DEATH [None]
  - BLOOD POTASSIUM INCREASED [None]
  - PROTEINURIA [None]
  - ANURIA [None]
  - OLIGURIA [None]
  - BLOOD LACTIC ACID INCREASED [None]
  - BLOOD BICARBONATE DECREASED [None]
  - OEDEMA PERIPHERAL [None]
  - DRY SKIN [None]
  - HYPOTENSION [None]
  - RENAL FAILURE ACUTE [None]
  - BLOOD UREA INCREASED [None]
  - PERIPHERAL COLDNESS [None]
  - PUPILLARY REFLEX IMPAIRED [None]
